FAERS Safety Report 7207847-7 (Version None)
Quarter: 2010Q4

REPORT INFORMATION
  Report Type: 
  Country: None (occurrence: None)
  Receive Date: 20101221
  Receipt Date: 20101206
  Transmission Date: 20110411
  Serious: Yes (Other)
  Sender: FDA-Public Use
  Company Number: 2010005327

PATIENT
  Age: 63 Year
  Sex: Female

DRUGS (3)
  1. ERLOTINIB (ERLOTINIB) (TABLET) (ERLOTINIB) [Suspect]
     Indication: NON-SMALL CELL LUNG CANCER
     Dosage: (150 MG, QD), ORAL
     Route: 048
  2. LOPERAMIDE [Concomitant]
  3. OXYTETRACYCLINE [Concomitant]

REACTIONS (6)
  - DIARRHOEA [None]
  - HEADACHE [None]
  - IRIDOCYCLITIS [None]
  - IRIS ADHESIONS [None]
  - NAUSEA [None]
  - STOMATITIS [None]
